FAERS Safety Report 10866210 (Version 1)
Quarter: 2015Q1

REPORT INFORMATION
  Report Type: Spontaneous
  Country: DE (occurrence: None)
  Receive Date: 20150219
  Receipt Date: 20150219
  Transmission Date: 20150721
  Serious: Yes (Congenital Anomaly)
  Sender: FDA-Public Use
  Company Number: IPC201502-000080

PATIENT

DRUGS (7)
  1. ALLOPURINOL (ALLOPURINOL) (ALLOPURINOL) [Suspect]
     Active Substance: ALLOPURINOL
     Indication: GLOMERULONEPHRITIS
     Dosage: 100MG PER DAY
  2. VALSARTAN. [Concomitant]
     Active Substance: VALSARTAN
  3. ALPHA-METHYLDOPA [Concomitant]
     Active Substance: METHYLDOPA
  4. AMLODIPINE [Concomitant]
     Active Substance: AMLODIPINE BESYLATE
  5. METOPROLOL [Concomitant]
     Active Substance: METOPROLOL
  6. HYDROCHLOROTHIAZIDE. [Concomitant]
     Active Substance: HYDROCHLOROTHIAZIDE
  7. DESLORATADIN [Concomitant]

REACTIONS (5)
  - Premature baby [None]
  - Patent ductus arteriosus [None]
  - Maternal drugs affecting foetus [None]
  - Eyelid ptosis [None]
  - Umbilical hernia [None]
